FAERS Safety Report 9199469 (Version 5)
Quarter: 2016Q2

REPORT INFORMATION
  Report Type: Spontaneous
  Country: US (occurrence: US)
  Receive Date: 20130329
  Receipt Date: 20160426
  Transmission Date: 20160815
  Serious: No
  Sender: FDA-Public Use
  Company Number: US-009507513-1303USA011182

PATIENT
  Sex: Male
  Weight: 78.55 kg

DRUGS (2)
  1. ENBREL [Concomitant]
     Active Substance: ETANERCEPT
     Indication: ARTHRITIS
     Dosage: UNK
     Route: 058
     Dates: start: 1990
  2. PROPECIA [Suspect]
     Active Substance: FINASTERIDE
     Indication: ANDROGENETIC ALOPECIA
     Dosage: 1 MG, QD
     Route: 048
     Dates: start: 1998, end: 20060802

REACTIONS (8)
  - Semen volume decreased [Unknown]
  - Type V hyperlipidaemia [Unknown]
  - Ankylosing spondylitis [Unknown]
  - Acne [Unknown]
  - Seborrhoeic dermatitis [Unknown]
  - Cholelithiasis [Unknown]
  - Erectile dysfunction [Unknown]
  - Cognitive disorder [Not Recovered/Not Resolved]

NARRATIVE: CASE EVENT DATE: 1998
